FAERS Safety Report 18286195 (Version 1)
Quarter: 2020Q3

REPORT INFORMATION
  Report Type: Spontaneous
  Country: US (occurrence: US)
  Receive Date: 20200919
  Receipt Date: 20200919
  Transmission Date: 20201103
  Serious: No
  Sender: FDA-Public Use
  Company Number: US-TEVA-2020-US-1829470

PATIENT
  Age: 61 Year
  Sex: Female
  Weight: 59.86 kg

DRUGS (4)
  1. ALVESCO [Concomitant]
     Active Substance: CICLESONIDE
  2. FEXOFENADINE [Suspect]
     Active Substance: FEXOFENADINE HYDROCHLORIDE
     Dosage: 90 MILLIGRAM DAILY;
     Route: 048
     Dates: start: 20200909, end: 20200910
  3. ZYRTEC [Concomitant]
     Active Substance: CETIRIZINE HYDROCHLORIDE
     Route: 065
     Dates: start: 202009
  4. FEXOFENADINE [Suspect]
     Active Substance: FEXOFENADINE HYDROCHLORIDE
     Indication: ECZEMA
     Route: 048
     Dates: start: 202009, end: 202009

REACTIONS (4)
  - Off label use [Unknown]
  - Psychomotor hyperactivity [Unknown]
  - Feeling jittery [Unknown]
  - Wrong technique in product usage process [Unknown]

NARRATIVE: CASE EVENT DATE: 20200909
